FAERS Safety Report 6419814-1 (Version None)
Quarter: 2009Q4

REPORT INFORMATION
  Report Type: 
  Country: None (occurrence: None)
  Receive Date: 20091013
  Receipt Date: 20080912
  Transmission Date: 20100525
  Serious: Yes (Other)
  Sender: FDA-Public Use
  Company Number: 1000000791

PATIENT

DRUGS (1)
  1. ESCITALOPRAM OXALATE [Suspect]

REACTIONS (1)
  - HEPATITIS FULMINANT [None]
